FAERS Safety Report 8618334 (Version 3)
Quarter: 2013Q4

REPORT INFORMATION
  Report Type: Spontaneous
  Country: US (occurrence: US)
  Receive Date: 20120615
  Receipt Date: 20131106
  Transmission Date: 20140711
  Serious: Yes (Hospitalization, Other)
  Sender: FDA-Public Use
  Company Number: US-009507513-1206USA01218

PATIENT
  Age: 78 Year
  Sex: Female
  Weight: 56.25 kg

DRUGS (14)
  1. COZAAR [Suspect]
     Dosage: UNK MG, UNK
     Route: 048
  2. NORPACE [Suspect]
     Indication: ATRIAL FIBRILLATION
     Dosage: UNK MG, UNK
     Route: 048
  3. NORPACE [Suspect]
     Dosage: UNK MG, UNK
     Route: 048
  4. NORPACE [Suspect]
     Dosage: 150 MG, BID
     Route: 048
  5. NORPACE-NORPACE CR [Suspect]
     Indication: ATRIAL FIBRILLATION
     Dosage: 150 MG, BID
     Route: 048
  6. MULTAQ [Suspect]
     Indication: ATRIAL FIBRILLATION
     Dates: start: 2009
  7. AMIODARONE [Suspect]
  8. UBIDECARENONE [Concomitant]
     Dosage: UNK UNK, BID
  9. LEVOTIROXINA S.O [Concomitant]
     Dosage: UNK UNK, QD
  10. PRILOSEC [Concomitant]
     Dosage: UNK UNK, QD
     Route: 048
  11. CALCITONIN [Concomitant]
  12. PLAVIX [Concomitant]
     Dosage: 75 MG, UNK
  13. DILTIAZEM [Concomitant]
     Dosage: 120 MG, UNK
  14. PRADAXA [Concomitant]
     Dosage: UNK UNK, BID

REACTIONS (9)
  - Hip fracture [Unknown]
  - Dry mouth [Not Recovered/Not Resolved]
  - Femur fracture [Unknown]
  - Thoracic vertebral fracture [Unknown]
  - Anaemia [Unknown]
  - Pain [Unknown]
  - Adverse reaction [Unknown]
  - Fall [Unknown]
  - Blood cholesterol increased [Unknown]
